FAERS Safety Report 23585628 (Version 2)
Quarter: 2024Q1

REPORT INFORMATION
  Report Type: Spontaneous
  Country: IE (occurrence: IE)
  Receive Date: 20240301
  Receipt Date: 20240312
  Transmission Date: 20240410
  Serious: Yes (Disabling, Other)
  Sender: FDA-Public Use
  Company Number: IE-HPRA-2023-108655

PATIENT
  Age: 46 Year
  Sex: Male

DRUGS (3)
  1. PREGABALIN [Suspect]
     Active Substance: PREGABALIN
     Indication: Product used for unknown indication
     Dosage: UNK
     Route: 048
     Dates: start: 20211101, end: 20231101
  2. COCAINE (G) [Concomitant]
     Indication: Substance use
     Dosage: UNK
     Route: 065
  3. BENZODIAZEPINE (GENERIC) [Concomitant]
     Indication: Substance use
     Dosage: UNK
     Route: 065

REACTIONS (5)
  - Prescription drug used without a prescription [Recovered/Resolved]
  - Drug abuse [Recovered/Resolved]
  - Product use in unapproved indication [Recovered/Resolved]
  - Drug dependence [Unknown]
  - Withdrawal syndrome [Recovered/Resolved]

NARRATIVE: CASE EVENT DATE: 20211101
